FAERS Safety Report 20742344 (Version 1)
Quarter: 2022Q2

REPORT INFORMATION
  Report Type: Spontaneous
  Country: FR (occurrence: FR)
  Receive Date: 20220424
  Receipt Date: 20220424
  Transmission Date: 20220720
  Serious: Yes (Hospitalization)
  Sender: FDA-Public Use
  Company Number: None

PATIENT
  Age: 49 Year
  Sex: Female
  Weight: 68 kg

DRUGS (13)
  1. PREGABALIN [Suspect]
     Active Substance: PREGABALIN
     Indication: Neuralgia
     Dosage: 150MG, FREQUENCY TIME 1DAYS, DURATION 8DAYS
     Route: 048
     Dates: start: 20210928, end: 20211006
  2. PREGABALIN [Suspect]
     Active Substance: PREGABALIN
     Dosage: 100MG,FREQUENCY TIME 1DAYS
     Route: 048
     Dates: end: 20210927
  3. PREGABALIN [Suspect]
     Active Substance: PREGABALIN
     Dosage: 100MG,FREQUENCY TIME 1DAYS
     Route: 048
     Dates: start: 20211007
  4. ENOXAPARIN SODIUM [Suspect]
     Active Substance: ENOXAPARIN SODIUM
     Indication: Thrombosis prophylaxis
     Dosage: ENOXAPARIN SODIUM ((MAMMALS/PIGS/INTESTINAL MUCOSA)),0.7MG, FREQUENCY TIME 12HRS, DURATION 1DAYS
     Route: 058
     Dates: start: 20210929, end: 20210930
  5. ENOXAPARIN SODIUM [Suspect]
     Active Substance: ENOXAPARIN SODIUM
     Dosage: 0.4MG, FREQUENCY TIME 1DAYS, DURATION 5DAYS
     Route: 058
     Dates: start: 20211001, end: 20211006
  6. LANSOPRAZOLE [Suspect]
     Active Substance: LANSOPRAZOLE
     Indication: Helicobacter gastritis
     Dosage: 30MG, FREQUENCY TIME 1DAYS
     Route: 048
     Dates: start: 20210921
  7. PHLOROGLUCINOL [Suspect]
     Active Substance: PHLOROGLUCINOL
     Indication: Abdominal pain
     Dosage: IF NECESSARY, 160MG, FREQUENCY TIME 8HRS, DURATION 12 DAYS
     Route: 048
     Dates: start: 20210924, end: 20211006
  8. ACETAMINOPHEN [Suspect]
     Active Substance: ACETAMINOPHEN
     Indication: Pain
     Dosage: 1000MG, FREQUENCY TIME 8HRS, DURATION 15DAYS
     Route: 048
     Dates: start: 20210921, end: 20211006
  9. NEFOPAM HYDROCHLORIDE [Suspect]
     Active Substance: NEFOPAM HYDROCHLORIDE
     Indication: Pain
     Dosage: DURATION:1DAYS
     Route: 065
     Dates: start: 20210922, end: 20210923
  10. KETOPROFEN [Suspect]
     Active Substance: KETOPROFEN
     Indication: Arthralgia
     Dosage: 100MG, FREQUENCY TIME 12HRS, DURATION 2DAYS
     Route: 042
     Dates: start: 20210925, end: 20210927
  11. METHYLPREDNISOLONE [Suspect]
     Active Substance: METHYLPREDNISOLONE
     Indication: Arthralgia
     Dosage: 70MG, FREQUENCY TIME 1DAYS, DURATION 4DAYS
     Route: 042
     Dates: start: 20210923, end: 20210927
  12. OXAZEPAM [Suspect]
     Active Substance: OXAZEPAM
     Indication: Anxiety
     Dosage: IF NECESSARY, 10MG, FREQUENCY TIME 1DAYS
     Route: 048
     Dates: start: 20210928
  13. METOCLOPRAMIDE HYDROCHLORIDE [Suspect]
     Active Substance: METOCLOPRAMIDE HYDROCHLORIDE
     Indication: Nausea
     Dosage: IF NECESSARY
     Route: 065
     Dates: start: 20210930

REACTIONS (1)
  - Tubulointerstitial nephritis [Recovered/Resolved]

NARRATIVE: CASE EVENT DATE: 20211001
